FAERS Safety Report 23646464 (Version 1)
Quarter: 2024Q1

REPORT INFORMATION
  Report Type: Report from Study
  Country: US (occurrence: None)
  Receive Date: 20240319
  Receipt Date: 20240319
  Transmission Date: 20240410
  Serious: Yes (Other)
  Sender: FDA-Public Use
  Company Number: 2024A063733

PATIENT
  Sex: Male
  Weight: 66.7 kg

DRUGS (1)
  1. TRUQAP [Suspect]
     Active Substance: CAPIVASERTIB
     Indication: Pancreatic carcinoma
     Route: 048
     Dates: end: 20240220

REACTIONS (2)
  - Pancreatitis [Recovering/Resolving]
  - Pain [Recovering/Resolving]
